FAERS Safety Report 16704051 (Version 1)
Quarter: 2019Q3

REPORT INFORMATION
  Report Type: Spontaneous
  Country: US (occurrence: US)
  Receive Date: 20190814
  Receipt Date: 20190814
  Transmission Date: 20191004
  Serious: No
  Sender: FDA-Public Use
  Company Number: US-TEVA-2019-US-1092938

PATIENT
  Age: 61 Year
  Sex: Female

DRUGS (1)
  1. ESTRADIOL. [Suspect]
     Active Substance: ESTRADIOL

REACTIONS (5)
  - Therapeutic product effect incomplete [Unknown]
  - Product substitution issue [Unknown]
  - Atrophic vulvovaginitis [Unknown]
  - Vulvovaginal dryness [Unknown]
  - Product quality issue [Unknown]
